FAERS Safety Report 6535021-6 (Version None)
Quarter: 2010Q1

REPORT INFORMATION
  Report Type: 
  Country: None (occurrence: None)
  Receive Date: 20100111
  Receipt Date: 20100111
  Transmission Date: 20100710
  Serious: Yes (Life-Threatening, Hospitalization, Other)
  Sender: FDA-Public Use
  Company Number: None

PATIENT
  Age: 63 Year
  Sex: Male

DRUGS (1)
  1. INDOMETHACIN [Suspect]
     Dosage: 50 MG PO BID
     Route: 048
     Dates: start: 20090501, end: 20090708

REACTIONS (5)
  - ANAEMIA [None]
  - ASTHENIA [None]
  - DECREASED ACTIVITY [None]
  - DYSPNOEA [None]
  - FATIGUE [None]
